FAERS Safety Report 16192665 (Version 5)
Quarter: 2019Q3

REPORT INFORMATION
  Report Type: Spontaneous
  Country: JP (occurrence: JP)
  Receive Date: 20190412
  Receipt Date: 20190930
  Transmission Date: 20191004
  Serious: Yes (Death, Other)
  Sender: FDA-Public Use
  Company Number: JP-ASTRAZENECA-2019SE54930

PATIENT
  Age: 61 Year
  Sex: Female
  Weight: 42 kg

DRUGS (14)
  1. REBAMIPIDE [Concomitant]
     Active Substance: REBAMIPIDE
     Indication: CONSTIPATION
     Route: 048
     Dates: start: 20170612, end: 20190514
  2. CEPHARANTHINE [Concomitant]
     Active Substance: CEPHARANTHINE
     Indication: NEUTROPHIL COUNT DECREASED
     Route: 048
     Dates: start: 20190111, end: 20190419
  3. NASEA OD [Concomitant]
     Active Substance: RAMOSETRON HYDROCHLORIDE
     Indication: PROPHYLAXIS
     Route: 048
     Dates: start: 20190322, end: 20190510
  4. ENSURE H [Concomitant]
     Indication: HYPOALBUMINAEMIA
     Route: 048
     Dates: start: 20190201, end: 20190405
  5. NEXIUM [Concomitant]
     Active Substance: ESOMEPRAZOLE MAGNESIUM
     Indication: GASTROOESOPHAGEAL REFLUX DISEASE
     Route: 048
     Dates: start: 20181102, end: 20190514
  6. SPIRONOLACTONE. [Concomitant]
     Active Substance: SPIRONOLACTONE
     Indication: OEDEMA PERIPHERAL
     Route: 048
     Dates: start: 20190322, end: 20190514
  7. LYNPARZA [Suspect]
     Active Substance: OLAPARIB
     Indication: BREAST CANCER FEMALE
     Route: 048
     Dates: start: 20190419, end: 20190510
  8. GLYCYRON [Concomitant]
     Indication: HEPATIC FUNCTION ABNORMAL
     Route: 048
     Dates: start: 20181102, end: 20190514
  9. LYNPARZA [Suspect]
     Active Substance: OLAPARIB
     Indication: BREAST CANCER FEMALE
     Route: 048
     Dates: start: 20190322, end: 20190404
  10. URSODEOXYCHOLIC ACID [Concomitant]
     Active Substance: URSODIOL
     Indication: HEPATIC FUNCTION ABNORMAL
     Route: 048
     Dates: start: 20181102, end: 20190514
  11. TSUMURA DAIKENCHUTO EXTRACT GRANULES FOR ETHICAL USE [Concomitant]
     Active Substance: HERBALS
     Indication: CONSTIPATION
     Route: 048
     Dates: start: 20181116, end: 20190510
  12. LEUCON [Concomitant]
     Indication: NEUTROPHIL COUNT DECREASED
     Route: 048
     Dates: start: 20190111, end: 20190419
  13. TORASEMIDE [Concomitant]
     Active Substance: TORSEMIDE
     Indication: OEDEMA PERIPHERAL
     Route: 048
     Dates: start: 20190222, end: 20190514
  14. DENOTAS [Concomitant]
     Active Substance: CALCIUM CARBONATE\CHOLECALCIFEROL\MAGNESIUM CARBONATE
     Indication: BREAST CANCER FEMALE
     Route: 048
     Dates: start: 20180411, end: 20190514

REACTIONS (6)
  - Platelet count decreased [Recovered/Resolved]
  - Weight increased [Recovering/Resolving]
  - Hepatic failure [Fatal]
  - Hepatic function abnormal [Fatal]
  - Metastases to lymph nodes [Fatal]
  - Ascites [Fatal]

NARRATIVE: CASE EVENT DATE: 201902
